FAERS Safety Report 14681452 (Version 1)
Quarter: 2018Q1

REPORT INFORMATION
  Report Type: Other
  Country: DK (occurrence: DK)
  Receive Date: 20180326
  Receipt Date: 20180326
  Transmission Date: 20180509
  Serious: Yes (Hospitalization)
  Sender: FDA-Public Use
  Company Number: DK-TAKEDA-2018TUS006830

PATIENT
  Age: 33 Year
  Sex: Female

DRUGS (1)
  1. ENTYVIO [Suspect]
     Active Substance: VEDOLIZUMAB
     Indication: COLITIS ULCERATIVE
     Dosage: STYRKE: 300 MG. DOSIS: 300 MG I.V. I UGE 0, 2 OG 6 SAMT DEREFTER HVER 8. UGE.
     Route: 042
     Dates: start: 20170926, end: 20180102

REACTIONS (6)
  - Hepatic enzyme abnormal [Unknown]
  - Alanine aminotransferase increased [Unknown]
  - Liver injury [Unknown]
  - Hepatitis cholestatic [Unknown]
  - Blood alkaline phosphatase increased [Unknown]
  - Bile duct obstruction [Unknown]

NARRATIVE: CASE EVENT DATE: 2017
